FAERS Safety Report 8866210 (Version 1)
Quarter: 2012Q4

REPORT INFORMATION
  Report Type: 
  Country: US (occurrence: US)
  Receive Date: 20121025
  Receipt Date: 20121025
  Transmission Date: 20130627
  Serious: No
  Sender: FDA-Public Use
  Company Number: US-PFIZER INC-2012261853

PATIENT
  Age: 21 Year
  Sex: Female
  Weight: 58.96 kg

DRUGS (3)
  1. FLUCONAZOLE [Suspect]
     Dosage: 150 mg, single
     Route: 048
  2. AMOXICILLIN [Suspect]
     Dosage: 500 mg, 3x/day
     Route: 048
     Dates: start: 20120605
  3. TRI SPRINTEC [Concomitant]
     Dosage: UNK

REACTIONS (2)
  - Ear infection [Unknown]
  - Ear pain [Unknown]
